FAERS Safety Report 7435605-7 (Version None)
Quarter: 2011Q2

REPORT INFORMATION
  Report Type: 
  Country: None (occurrence: None)
  Receive Date: 20110418
  Receipt Date: 20110411
  Transmission Date: 20111010
  Serious: Yes (Death, Hospitalization)
  Sender: FDA-Public Use
  Company Number: UTC-005819

PATIENT
  Age: 53 Year
  Sex: Female
  Weight: 55 kg

DRUGS (6)
  1. TRACLEER [Concomitant]
  2. DIURETICS (DIURETICS) [Concomitant]
  3. ADCIRCA (TADALFAIL) [Concomitant]
  4. FLOLAN [Concomitant]
  5. REMODULIN [Suspect]
     Indication: PULMONARY HYPERTENSION
     Dosage: 80.64 UG/KG (0.056 UG/KG,1 IN 1 MIN),INTRAVENOUS
     Route: 042
     Dates: start: 20101230, end: 20110201
  6. REVATIO [Concomitant]

REACTIONS (5)
  - ILL-DEFINED DISORDER [None]
  - SEPSIS [None]
  - DYSPNOEA [None]
  - NAUSEA [None]
  - VOMITING [None]
